FAERS Safety Report 4964988-2 (Version None)
Quarter: 2006Q2

REPORT INFORMATION
  Report Type: 
  Country: None (occurrence: None)
  Receive Date: 20060403
  Receipt Date: 20060318
  Transmission Date: 20061013
  Serious: Yes (Other)
  Sender: FDA-Public Use
  Company Number: 2006EU000388

PATIENT
  Age: 3 Year
  Sex: Female

DRUGS (2)
  1. PROTOPIC [Suspect]
     Indication: ECZEMA
     Dosage: D/
  2. ELIDEL [Suspect]
     Dosage: D/TOPICAL
     Route: 061

REACTIONS (6)
  - ABDOMINAL MASS [None]
  - CONSTIPATION [None]
  - DIFFUSE LARGE B-CELL LYMPHOMA [None]
  - HEPATIC NEOPLASM [None]
  - INTUSSUSCEPTION [None]
  - SMALL INTESTINE CARCINOMA [None]
